FAERS Safety Report 15009920 (Version 2)
Quarter: 2018Q3

REPORT INFORMATION
  Report Type: Spontaneous
  Country: CH (occurrence: CH)
  Receive Date: 20180614
  Receipt Date: 20180726
  Transmission Date: 20181010
  Serious: Yes (Hospitalization, Other)
  Sender: FDA-Public Use
  Company Number: CH-AMGEN-CHESP2018078182

PATIENT
  Age: 69 Year
  Sex: Female

DRUGS (4)
  1. VITAMIN D3 [Concomitant]
     Active Substance: CHOLECALCIFEROL
     Indication: OSTEOPENIA
  2. PROLIA [Suspect]
     Active Substance: DENOSUMAB
     Indication: BREAST CANCER
     Dosage: 60 MG, Q6MO
     Route: 058
     Dates: end: 201611
  3. ARIMIDEX [Concomitant]
     Active Substance: ANASTROZOLE
     Dosage: 500 IU, QD (2 DROPS OR 14 DROPS ONCE PER WEEK
     Dates: start: 2013
  4. PROLIA [Suspect]
     Active Substance: DENOSUMAB
     Indication: OSTEOPOROSIS
     Dosage: 60 MG, Q6MO
     Route: 058
     Dates: start: 20171221

REACTIONS (15)
  - Depressed mood [Unknown]
  - Lumbar vertebral fracture [Unknown]
  - Osteoarthritis [Unknown]
  - Staphylococcal infection [Unknown]
  - Spinal pain [Unknown]
  - Joint stiffness [Unknown]
  - Rheumatic disorder [Unknown]
  - Reflux gastritis [Unknown]
  - Sacralisation [Unknown]
  - Thoracic vertebral fracture [Unknown]
  - Asthenia [Unknown]
  - Pain [Not Recovered/Not Resolved]
  - Off label use [Unknown]
  - Myalgia [Unknown]
  - Osteopenia [Unknown]

NARRATIVE: CASE EVENT DATE: 20130604
